FAERS Safety Report 9310613 (Version 1)
Quarter: 2013Q2

REPORT INFORMATION
  Report Type: Report from Study
  Country: DE (occurrence: DE)
  Receive Date: 20130527
  Receipt Date: 20130527
  Transmission Date: 20140414
  Serious: Yes (Hospitalization, Other)
  Sender: FDA-Public Use
  Company Number: DE-GENZYME-THYM-1003597

PATIENT
  Age: 69 Year
  Sex: Female
  Weight: 81 kg

DRUGS (23)
  1. THYMOGLOBULINE [Suspect]
     Indication: IMMUNOSUPPRESSION
     Dosage: 125 MG, QD
     Route: 042
     Dates: start: 20091007
  2. TACROLIMUS [Suspect]
     Indication: IMMUNOSUPPRESSION
     Dosage: 16 MG, QD
     Route: 048
     Dates: start: 20091007
  3. TACROLIMUS [Suspect]
     Dosage: 4 MG, QD
     Route: 048
  4. TACROLIMUS [Suspect]
     Dosage: 8 MG, QD
     Route: 048
     Dates: end: 20091122
  5. CELLCEPT [Suspect]
     Indication: IMMUNOSUPPRESSION
     Dosage: 1000 MG, BID
     Route: 048
     Dates: start: 20091007
  6. CELLCEPT [Suspect]
     Dosage: 500 MG, TID
     Route: 048
  7. CELLCEPT [Suspect]
     Dosage: 500 MG, BID
  8. DECORTIN H [Suspect]
     Indication: IMMUNOSUPPRESSION
     Dosage: 75 MG, QD
     Route: 048
     Dates: start: 20091007
  9. DECORTIN H [Suspect]
     Dosage: 60 MG, QD
     Route: 048
  10. DECORTIN H [Suspect]
     Dosage: 20 MG, QD
     Route: 048
  11. CLEXANE [Concomitant]
     Indication: PRODUCT USED FOR UNKNOWN INDICATION
     Dosage: 40 MG, UNK
     Route: 065
     Dates: start: 20091008, end: 20091028
  12. HEPARIN [Concomitant]
     Indication: PRODUCT USED FOR UNKNOWN INDICATION
     Dosage: UNK
     Route: 065
     Dates: start: 20091007
  13. HEPARIN [Concomitant]
     Dosage: UNK
     Route: 065
     Dates: start: 20091029, end: 20091120
  14. PANTOZOL [Concomitant]
     Indication: PRODUCT USED FOR UNKNOWN INDICATION
     Dosage: 80 MG, UNK
     Route: 065
     Dates: start: 20091007
  15. VALCYTE [Concomitant]
     Indication: PRODUCT USED FOR UNKNOWN INDICATION
     Dosage: 400 MG, UNK
     Route: 065
     Dates: start: 20091007
  16. KEPINOL [Concomitant]
     Indication: PRODUCT USED FOR UNKNOWN INDICATION
     Dosage: 480 MG, 3X/W
     Route: 065
     Dates: start: 20091007
  17. INSULIN [Concomitant]
     Indication: PRODUCT USED FOR UNKNOWN INDICATION
     Dosage: UNK
     Route: 065
     Dates: start: 20091007
  18. CONCOR [Concomitant]
     Indication: PRODUCT USED FOR UNKNOWN INDICATION
     Dosage: 5 MG, UNK
     Route: 065
     Dates: start: 20091014, end: 20091019
  19. TOREM [Concomitant]
     Indication: PRODUCT USED FOR UNKNOWN INDICATION
     Dosage: 5 MG, UNK
     Route: 065
     Dates: start: 2009
  20. BELOC ZOK [Concomitant]
     Indication: PRODUCT USED FOR UNKNOWN INDICATION
     Dosage: 150 MG, QD
     Route: 065
     Dates: start: 2009
  21. DELIX [Concomitant]
     Indication: PRODUCT USED FOR UNKNOWN INDICATION
     Dosage: 10 MG, UNK
     Route: 065
     Dates: start: 2009
  22. CYMEVENE [Concomitant]
     Indication: PRODUCT USED FOR UNKNOWN INDICATION
     Dosage: 200 MG, BID
     Route: 065
     Dates: start: 20091024, end: 20091029
  23. CYMEVENE [Concomitant]
     Dosage: 80 MG, UNK
     Route: 065
     Dates: start: 2009

REACTIONS (8)
  - Red blood cell count decreased [Unknown]
  - Blood creatinine increased [Unknown]
  - Oedema [Unknown]
  - Dyspnoea [Unknown]
  - Perirenal haematoma [Recovered/Resolved]
  - Fascial rupture [Recovered/Resolved]
  - Impaired healing [Recovered/Resolved]
  - Urinary tract infection [Recovered/Resolved with Sequelae]
